FAERS Safety Report 6479849-X (Version None)
Quarter: 2009Q4

REPORT INFORMATION
  Report Type: 
  Country: None (occurrence: None)
  Receive Date: 20091208
  Receipt Date: 20091203
  Transmission Date: 20100525
  Serious: Yes (Hospitalization)
  Sender: FDA-Public Use
  Company Number: DE-ROCHE-670775

PATIENT
  Sex: Female
  Weight: 60 kg

DRUGS (4)
  1. BONIVA [Suspect]
     Indication: OSTEOPOROSIS
     Route: 042
     Dates: start: 20091116, end: 20091116
  2. EFEROX [Concomitant]
     Dosage: INTAKE IN THE MORNING
  3. ATENOLOL [Concomitant]
     Dosage: NTAKE IN THE MORNING
  4. ALBUTEROL [Concomitant]
     Dosage: INTAKE IN THE MORNING

REACTIONS (3)
  - ANAPHYLACTIC SHOCK [None]
  - ANGIOEDEMA [None]
  - DYSPNOEA [None]
